FAERS Safety Report 18534355 (Version 3)
Quarter: 2021Q2

REPORT INFORMATION
  Report Type: Spontaneous
  Country: CA (occurrence: CA)
  Receive Date: 20201123
  Receipt Date: 20210510
  Transmission Date: 20210717
  Serious: Yes (Other)
  Sender: FDA-Public Use
  Company Number: CA-PFIZER INC-2020225124

PATIENT
  Age: 69 Year
  Sex: Male

DRUGS (10)
  1. INLYTA [Suspect]
     Active Substance: AXITINIB
     Dosage: 5 MG, TWICE DAILY
     Route: 048
     Dates: start: 20200724, end: 2020
  2. INLYTA [Suspect]
     Active Substance: AXITINIB
     Dosage: 5 MG, TWICE DAILY
     Route: 048
     Dates: start: 20200924, end: 2020
  3. KEYTRUDA [Concomitant]
     Active Substance: PEMBROLIZUMAB
     Dosage: UNK
  4. AMIODARONE [Concomitant]
     Active Substance: AMIODARONE
     Dosage: 200 MG, DAILY
  5. INLYTA [Suspect]
     Active Substance: AXITINIB
     Dosage: 7 MG, 2X/DAY
     Route: 048
     Dates: start: 20210105
  6. METOPROLOL. [Concomitant]
     Active Substance: METOPROLOL
     Dosage: 50 MG, ONCE DAILY
     Dates: start: 20200717
  7. ATORVASTATIN [Concomitant]
     Active Substance: ATORVASTATIN
     Dosage: 40 MG, ONCE DAILY
  8. MARIJUANA [Concomitant]
     Active Substance: CANNABIS SATIVA SUBSP. INDICA TOP
     Indication: HEADACHE
     Dosage: UNK
  9. XARELTO [Concomitant]
     Active Substance: RIVAROXABAN
     Dosage: 15 MG, ONCE DAILY
  10. RAMIPRIL. [Concomitant]
     Active Substance: RAMIPRIL
     Dosage: 5 MG, DAILY

REACTIONS (1)
  - Pulmonary oedema [Unknown]

NARRATIVE: CASE EVENT DATE: 2020
